FAERS Safety Report 9207091 (Version 1)
Quarter: 2013Q1

REPORT INFORMATION
  Report Type: Spontaneous
  Country: US (occurrence: None)
  Receive Date: 20120718
  Receipt Date: 20120718
  Transmission Date: 20140127
  Serious: Yes (Life-Threatening, Hospitalization)
  Sender: FDA-Public Use
  Company Number: 2011SP038116

PATIENT
  Age: 39 Year
  Sex: Male

DRUGS (3)
  1. INTEGRILIN [Suspect]
     Indication: SURGERY
     Dosage: ;IV
     Route: 042
     Dates: start: 20110810, end: 20110810
  2. HEPRINAR [Concomitant]
  3. PLAVIX [Concomitant]

REACTIONS (1)
  - Haematoma [None]
